FAERS Safety Report 10163892 (Version 1)
Quarter: 2014Q2

REPORT INFORMATION
  Report Type: Spontaneous
  Country: US (occurrence: US)
  Receive Date: 20140510
  Receipt Date: 20140510
  Transmission Date: 20141212
  Serious: No
  Sender: FDA-Public Use
  Company Number: US-009507513-2012SP023702

PATIENT
  Sex: Female

DRUGS (2)
  1. CLARITIN [Suspect]
     Indication: HYPERSENSITIVITY
     Dosage: UNK UNK, UNKNOWN
     Route: 048
  2. CLARITIN [Suspect]
     Indication: NASAL CONGESTION

REACTIONS (1)
  - Drug ineffective for unapproved indication [Unknown]
